FAERS Safety Report 16658743 (Version 1)
Quarter: 2019Q3

REPORT INFORMATION
  Report Type: Spontaneous
  Country: US (occurrence: US)
  Receive Date: 20190801
  Receipt Date: 20190801
  Transmission Date: 20191004
  Serious: No
  Sender: FDA-Public Use
  Company Number: US-BAUSCH-BL-2019-021611

PATIENT
  Age: 90 Year
  Sex: Female
  Weight: 64.47 kg

DRUGS (1)
  1. XIFAXAN [Suspect]
     Active Substance: RIFAXIMIN
     Indication: PRODUCT USED FOR UNKNOWN INDICATION
     Dosage: STOPPED FIVE TO SIX DAYS AFTER STARTING ON XIFAXAN
     Route: 048
     Dates: start: 20190709, end: 201907

REACTIONS (2)
  - Fatigue [Recovering/Resolving]
  - Pruritus generalised [Recovering/Resolving]

NARRATIVE: CASE EVENT DATE: 201907
